FAERS Safety Report 8900805 (Version 1)
Quarter: 2012Q4

REPORT INFORMATION
  Report Type: 
  Country: CA (occurrence: CA)
  Receive Date: 20121109
  Receipt Date: 20121109
  Transmission Date: 20130627
  Serious: Yes (Hospitalization)
  Sender: FDA-Public Use
  Company Number: PHMT2007CA00979

PATIENT
  Sex: Male

DRUGS (4)
  1. SANDOSTATIN LAR [Suspect]
     Indication: CARCINOID TUMOUR
     Dosage: 60 mg, every 3 weeks
     Route: 030
     Dates: start: 20040701
  2. LASIX [Concomitant]
  3. LOSEC                                   /CAN/ [Concomitant]
  4. MAGNESIUM [Concomitant]

REACTIONS (16)
  - Rotator cuff syndrome [Recovered/Resolved]
  - Blood pressure decreased [Unknown]
  - Injection site reaction [Unknown]
  - Musculoskeletal pain [Unknown]
  - Musculoskeletal chest pain [Unknown]
  - Back pain [Unknown]
  - Flushing [Unknown]
  - Muscle atrophy [Unknown]
  - Weight decreased [Unknown]
  - Pruritus [Unknown]
  - Abdominal rigidity [Unknown]
  - Injection site swelling [Unknown]
  - Drug administered at inappropriate site [Unknown]
  - Diarrhoea [Unknown]
  - Rash [Unknown]
  - Abdominal pain [Unknown]
